FAERS Safety Report 13212541 (Version 1)
Quarter: 2017Q1

REPORT INFORMATION
  Report Type: Spontaneous
  Country: JP (occurrence: JP)
  Receive Date: 20170210
  Receipt Date: 20170210
  Transmission Date: 20170428
  Serious: Yes (Other)
  Sender: FDA-Public Use
  Company Number: JP-ASTRAZENECA-2017SE14828

PATIENT
  Age: 71 Year
  Sex: Male

DRUGS (1)
  1. IRESSA [Suspect]
     Active Substance: GEFITINIB
     Route: 048
     Dates: start: 2015, end: 2017

REACTIONS (3)
  - Malignant neoplasm progression [Unknown]
  - Malaise [Unknown]
  - Nausea [Unknown]
